FAERS Safety Report 6473945-9 (Version None)
Quarter: 2009Q4

REPORT INFORMATION
  Report Type: 
  Country: None (occurrence: None)
  Receive Date: 20091204
  Receipt Date: 20091116
  Transmission Date: 20100525
  Serious: No
  Sender: FDA-Public Use
  Company Number: A0814207A

PATIENT
  Age: 23 Year
  Sex: Female

DRUGS (5)
  1. LAMICTAL [Suspect]
     Indication: DRUG USE FOR UNKNOWN INDICATION
     Dosage: 25MG PER DAY
     Route: 048
     Dates: start: 20091001, end: 20091030
  2. NSAIDS [Suspect]
     Indication: DRUG USE FOR UNKNOWN INDICATION
  3. ZOLOFT [Concomitant]
     Dosage: 100MG PER DAY
     Route: 048
  4. SEROQUEL [Concomitant]
     Dosage: 25MG AT NIGHT
     Route: 048
  5. KLONOPIN [Concomitant]
     Dosage: .5U TWICE PER DAY
     Route: 048

REACTIONS (5)
  - BLADDER SPASM [None]
  - CONTUSION [None]
  - PERIVASCULAR DERMATITIS [None]
  - PYREXIA [None]
  - RASH GENERALISED [None]
